FAERS Safety Report 12348741 (Version 2)
Quarter: 2018Q4

REPORT INFORMATION
  Report Type: Spontaneous
  Country: US (occurrence: US)
  Receive Date: 20160509
  Receipt Date: 20181211
  Transmission Date: 20190204
  Serious: No
  Sender: FDA-Public Use
  Company Number: US-PFIZER INC-2015271895

PATIENT
  Age: 72 Year
  Sex: Female
  Weight: 86.21 kg

DRUGS (9)
  1. XELJANZ [Suspect]
     Active Substance: TOFACITINIB CITRATE
     Indication: RHEUMATOID ARTHRITIS
     Dosage: 5 MG, 2X/DAY
     Route: 048
     Dates: start: 2015
  2. CARVEDILOL. [Concomitant]
     Active Substance: CARVEDILOL
     Dosage: 6.25, ONE A TWO OF THOSE
  3. LISINOPRIL HCTZ [Concomitant]
     Active Substance: HYDROCHLOROTHIAZIDE\LISINOPRIL
     Dosage: 10 MG (HYDROCHLOROTHIAZIDE)/ 12.5 MG (LISINOPRIL), 1X/DAY
  4. PLAQUENIL [Concomitant]
     Active Substance: HYDROXYCHLOROQUINE SULFATE
     Dosage: 200, TWO OF THEM ON MONDAY, WEDNESDAY AND FRIDAY
  5. PLAQUENIL [Concomitant]
     Active Substance: HYDROXYCHLOROQUINE SULFATE
     Dosage: 200, ALTERNATE DAY
  6. NEXIUM [Concomitant]
     Active Substance: ESOMEPRAZOLE MAGNESIUM
     Dosage: UNK (40), 1X/DAY
  7. KOMBIGLYZE XR [Concomitant]
     Active Substance: METFORMIN HYDROCHLORIDE\SAXAGLIPTIN HYDROCHLORIDE
     Dosage: 2.5 MG (SAXAGLIPTIN HYDROCHLORIDE)/ 1000 MG (METFORMIN HYDROCHLORIDE), 1X/DAY
  8. NITRO [Concomitant]
     Active Substance: NITROGLYCERIN
     Dosage: 0.2 MG, 1X/DAY
  9. SYNTHROID [Concomitant]
     Active Substance: LEVOTHYROXINE SODIUM
     Dosage: UNK (112), 1X/DAY

REACTIONS (2)
  - Herpes zoster [Unknown]
  - Intentional product use issue [Unknown]
